FAERS Safety Report 4921297-5 (Version None)
Quarter: 2006Q1

REPORT INFORMATION
  Report Type: 
  Country: None (occurrence: None)
  Receive Date: 20060224
  Receipt Date: 20060214
  Transmission Date: 20060701
  Serious: Yes (Hospitalization, Other)
  Sender: FDA-Public Use
  Company Number: US-JNJFOC-20060203905

PATIENT
  Sex: Female

DRUGS (3)
  1. DURAGESIC-100 [Suspect]
     Indication: MIGRAINE
     Route: 062
  2. CYMBALTA [Concomitant]
     Indication: PAIN
  3. DEPAKOTE [Concomitant]
     Indication: PAIN

REACTIONS (4)
  - AMNESIA [None]
  - OFF LABEL USE [None]
  - RESPIRATORY ARREST [None]
  - SCOTOMA [None]
